FAERS Safety Report 9028304 (Version 2)
Quarter: 2013Q1

REPORT INFORMATION
  Report Type: Spontaneous
  Country: JP (occurrence: JP)
  Receive Date: 20130124
  Receipt Date: 20130206
  Transmission Date: 20140127
  Serious: Yes (Other)
  Sender: FDA-Public Use
  Company Number: JP-PFIZER INC-2013026480

PATIENT
  Sex: Female

DRUGS (1)
  1. NASANYL [Suspect]
     Indication: ENDOMETRIOSIS
     Dosage: UNK
     Route: 045
     Dates: start: 201301

REACTIONS (2)
  - Polymenorrhagia [Recovered/Resolved]
  - Anaemia [Recovered/Resolved]
